FAERS Safety Report 5761953-2 (Version None)
Quarter: 2008Q2

REPORT INFORMATION
  Report Type: 
  Country: None (occurrence: None)
  Receive Date: 20080603
  Receipt Date: 20080522
  Transmission Date: 20081010
  Serious: Yes (Other)
  Sender: FDA-Public Use
  Company Number: 163-21880-08020348

PATIENT
  Age: 65 Year
  Sex: Female
  Weight: 88 kg

DRUGS (4)
  1. REVLIMID [Suspect]
     Indication: MULTIPLE MYELOMA
     Dosage: 15 MG,  QD, ORAL; 10 MG, FOR 3 MONTHS , ORAL
     Route: 048
     Dates: start: 20070119, end: 20080129
  2. LEVAQUIN [Concomitant]
  3. IVIG         (IMMUNOGLOBULIN) [Concomitant]
  4. SYNTHROID [Concomitant]

REACTIONS (7)
  - AUTOIMMUNE THYROIDITIS [None]
  - BRONCHITIS [None]
  - CLOSTRIDIUM DIFFICILE COLITIS [None]
  - DISEASE PROGRESSION [None]
  - HYPOTHYROIDISM [None]
  - MASS [None]
  - RESPIRATORY SYNCYTIAL VIRUS INFECTION [None]
